FAERS Safety Report 6337324-7 (Version None)
Quarter: 2009Q3

REPORT INFORMATION
  Report Type: 
  Country: None (occurrence: None)
  Receive Date: 20090828
  Receipt Date: 20090828
  Transmission Date: 20100115
  Serious: Yes (Other)
  Sender: FDA-Public Use
  Company Number: None

PATIENT
  Age: 89 Year
  Sex: Female
  Weight: 56.246 kg

DRUGS (1)
  1. NAMENDA [Suspect]
     Indication: DEMENTIA ALZHEIMER'S TYPE
     Dosage: 5 MG 2X/DAY PO
     Route: 048
     Dates: start: 20090609, end: 20090622

REACTIONS (4)
  - DEPRESSION [None]
  - DYSPHORIA [None]
  - SUICIDAL IDEATION [None]
  - TEARFULNESS [None]
